FAERS Safety Report 18529314 (Version 2)
Quarter: 2020Q4

REPORT INFORMATION
  Report Type: Spontaneous
  Country: DE (occurrence: DE)
  Receive Date: 20201120
  Receipt Date: 20201211
  Transmission Date: 20210114
  Serious: Yes (Congenital Anomaly, Other)
  Sender: FDA-Public Use
  Company Number: DE-ALLERGAN-2044804US

PATIENT
  Sex: Female
  Weight: 1.65 kg

DRUGS (19)
  1. VITAMIN D NOS [Suspect]
     Active Substance: VITAMIN D NOS
     Indication: FOETAL EXPOSURE DURING PREGNANCY
     Dosage: 1000 UNITS, QD
     Route: 064
     Dates: start: 20190912, end: 20200301
  2. CANIFUG CREMOLUM KOMBI [Suspect]
     Active Substance: CLOTRIMAZOLE
     Indication: FOETAL EXPOSURE DURING PREGNANCY
     Dosage: 1 COURSE AT GW 7 1/7 AND FOLLOWING DAYS
     Route: 064
     Dates: start: 20190909
  3. NOVORAPID [Suspect]
     Active Substance: INSULIN ASPART
     Indication: FOETAL EXPOSURE DURING PREGNANCY
     Dosage: UNK
     Route: 064
     Dates: start: 20190721, end: 20200301
  4. PROGESTERONE. [Suspect]
     Active Substance: PROGESTERONE
     Indication: FOETAL EXPOSURE DURING PREGNANCY
     Dosage: UNK
     Route: 064
     Dates: start: 20190830, end: 20190909
  5. RHESONATIV [Suspect]
     Active Substance: HUMAN RHO(D) IMMUNE GLOBULIN
     Indication: FOETAL EXPOSURE DURING PREGNANCY
     Dosage: IN GW 6
     Route: 064
  6. NIFEDIPIN [Suspect]
     Active Substance: NIFEDIPINE
     Indication: FOETAL EXPOSURE DURING PREGNANCY
     Dosage: 10 MG UP TO 20 MG DAILY
     Route: 064
     Dates: start: 20200222, end: 20200301
  7. URSOFALK GR [Suspect]
     Active Substance: URSODIOL
     Indication: FOETAL EXPOSURE DURING PREGNANCY
     Dosage: 250 MG, TID
     Route: 064
     Dates: start: 20200222, end: 20200301
  8. FOSFOMYCIN TROMETHAMINE - BP [Suspect]
     Active Substance: FOSFOMYCIN TROMETHAMINE
     Indication: FOETAL EXPOSURE DURING PREGNANCY
     Dosage: 3000 MG, SINGLE
     Route: 064
     Dates: start: 20190815, end: 20190815
  9. FOSFOMYCIN TROMETHAMINE - BP [Suspect]
     Active Substance: FOSFOMYCIN TROMETHAMINE
     Dosage: 3000 MG, SINGLE
     Route: 064
     Dates: start: 20190923, end: 20190923
  10. RHESONATIV [Suspect]
     Active Substance: HUMAN RHO(D) IMMUNE GLOBULIN
     Dosage: IN GW 26 1/7
     Route: 064
  11. CIMZIA [Suspect]
     Active Substance: CERTOLIZUMAB PEGOL
     Indication: FOETAL EXPOSURE DURING PREGNANCY
     Dosage: 200 MG, Q2WEEKS
     Route: 064
     Dates: start: 20190714, end: 20200214
  12. INFLUENZA VACCINE [Suspect]
     Active Substance: INFLUENZA VIRUS VACCINE
     Indication: FOETAL EXPOSURE DURING PREGNANCY
     Dosage: UNK
     Route: 064
  13. PARACETAMOL [Suspect]
     Active Substance: ACETAMINOPHEN
     Indication: FOETAL EXPOSURE DURING PREGNANCY
     Dosage: AT GESTATIONAL WEEK 31 4/7
     Route: 064
     Dates: start: 20200227, end: 20200229
  14. CANIFUG CREMOLUM KOMBI [Suspect]
     Active Substance: CLOTRIMAZOLE
     Dosage: 1 COURSE AT GW 21 3/7 AND FOLLOWING DAYS
     Route: 064
     Dates: start: 20191218
  15. L-THYROXIN 1A PHARMA [Suspect]
     Active Substance: LEVOTHYROXINE SODIUM
     Indication: FOETAL EXPOSURE DURING PREGNANCY
     Dosage: 125 ?G, QD
     Route: 064
     Dates: start: 20190721, end: 20200301
  16. PARACETAMOL [Suspect]
     Active Substance: ACETAMINOPHEN
     Dosage: AT GW 31 6/7
     Route: 064
     Dates: start: 20200229, end: 20200229
  17. FOLIO FORTE [Suspect]
     Active Substance: FOLIC ACID\VITAMINS
     Indication: FOETAL EXPOSURE DURING PREGNANCY
     Dosage: 0.4 MG UP TO 0.8 MG DAILY, 0. - 32. GESTATIONAL WEEK
     Route: 064
     Dates: start: 20190721, end: 20200301
  18. CELESTAN [Suspect]
     Active Substance: BETAMETHASONE
     Indication: FOETAL EXPOSURE DURING PREGNANCY
     Dosage: UNK
     Route: 064
     Dates: start: 20200224, end: 20200227
  19. METHYLDOPA. [Suspect]
     Active Substance: METHYLDOPA
     Indication: FOETAL EXPOSURE DURING PREGNANCY
     Dosage: 250 MG UP TO 1000 MG DAILY
     Route: 064
     Dates: start: 20200125, end: 20200301

REACTIONS (6)
  - Premature baby [Unknown]
  - Congenital inguinal hernia [Unknown]
  - Infantile haemangioma [Unknown]
  - Ventricular septal defect [Recovering/Resolving]
  - Atrial septal defect [Unknown]
  - Foetal exposure during pregnancy [Unknown]

NARRATIVE: CASE EVENT DATE: 20200301
